FAERS Safety Report 4853696-4 (Version None)
Quarter: 2005Q4

REPORT INFORMATION
  Report Type: 
  Country: None (occurrence: None)
  Receive Date: 20051214
  Receipt Date: 20051208
  Transmission Date: 20060501
  Serious: Yes (Death, Other)
  Sender: FDA-Public Use
  Company Number: PHBS2005DE18233

PATIENT
  Age: 57 Year
  Sex: Male

DRUGS (4)
  1. AZATHIOPRINE [Concomitant]
     Indication: RENAL TRANSPLANT
  2. PREDNISOLONE [Concomitant]
     Indication: RENAL TRANSPLANT
  3. CYCLOSPORINE [Suspect]
     Indication: RENAL TRANSPLANT
     Dosage: 300 MG/DAY
     Route: 065
     Dates: start: 19890101, end: 19980101
  4. CYCLOSPORINE [Suspect]
     Dosage: 240 MG/DAY
     Route: 065
     Dates: start: 19980101

REACTIONS (7)
  - DRUG LEVEL INCREASED [None]
  - MALIGNANT FIBROUS HISTIOCYTOMA [None]
  - MALIGNANT FIBROUS HISTIOCYTOMA METASTATIC [None]
  - METASTASES TO BONE [None]
  - NEOPLASM RECURRENCE [None]
  - SKIN CANCER [None]
  - SKIN NEOPLASM EXCISION [None]
